FAERS Safety Report 24764408 (Version 1)
Quarter: 2024Q4

REPORT INFORMATION
  Report Type: Spontaneous
  Country: US (occurrence: US)
  Receive Date: 20241223
  Receipt Date: 20241223
  Transmission Date: 20250114
  Serious: Yes (Other)
  Sender: CHEPLAPHARM
  Company Number: US-ROCHE-10000157596

PATIENT
  Sex: Female

DRUGS (4)
  1. CAPECITABINE [Suspect]
     Active Substance: CAPECITABINE
     Indication: Product used for unknown indication
     Dosage: RESUMED 1000 MG BID (TWICE DAY) 1 WEEK ON AND 1 WEEK OFF?DAILY DOSE: 2000 MILLIGRAM
     Dates: start: 20241009, end: 20241105
  2. CAPECITABINE [Suspect]
     Active Substance: CAPECITABINE
     Indication: Product used for unknown indication
     Dosage: 100 MG, 2 EVERY 1 DAY?DAILY DOSE: 200 MILLIGRAM
  3. TUKYSA [Suspect]
     Active Substance: TUCATINIB
     Indication: Product used for unknown indication
     Dosage: 300 MG, 2 EVERY 1 DAY?DAILY DOSE: 600 MILLIGRAM
     Dates: start: 20241009, end: 20241105
  4. HERCEPTIN [Concomitant]
     Active Substance: TRASTUZUMAB

REACTIONS (5)
  - Pruritus [Unknown]
  - Stomatitis [Not Recovered/Not Resolved]
  - Hypoaesthesia [Unknown]
  - Condition aggravated [Recovering/Resolving]
  - Rash [Recovering/Resolving]

NARRATIVE: CASE EVENT DATE: 20240101
